FAERS Safety Report 8917578 (Version 1)
Quarter: 2012Q4

REPORT INFORMATION
  Report Type: 
  Country: CA (occurrence: CA)
  Receive Date: 20121120
  Receipt Date: 20121120
  Transmission Date: 20130627
  Serious: Yes (Other)
  Sender: FDA-Public Use
  Company Number: CA-ROCHE-1154345

PATIENT

DRUGS (1)
  1. AVASTIN [Suspect]
     Indication: GASTROINTESTINAL CARCINOMA
     Route: 065

REACTIONS (1)
  - Hepatic lesion [Unknown]
